FAERS Safety Report 8143793-2 (Version None)
Quarter: 2012Q1

REPORT INFORMATION
  Report Type: 
  Country: None (occurrence: None)
  Receive Date: 20120217
  Receipt Date: 20120209
  Transmission Date: 20120608
  Serious: Yes (Hospitalization)
  Sender: FDA-Public Use
  Company Number: DK-VERTEX PHARMACEUTICALS INC.-000000000000000006

PATIENT
  Age: 72 Year
  Sex: Male

DRUGS (10)
  1. CITALOPRAM HYDROBROMIDE [Concomitant]
     Dates: start: 20110929
  2. INCIVO (TELAPREVIR) [Concomitant]
  3. RIBAVIRIN [Concomitant]
     Indication: HEPATITIS C
     Route: 065
     Dates: start: 20111114
  4. INCIVO (TELAPREVIR) [Suspect]
     Indication: HEPATITIS C
     Dosage: DOSAGE FORM: TABLET
     Route: 065
     Dates: start: 20111114
  5. LOSARTAN POTASSIUM [Concomitant]
     Dates: end: 20110301
  6. CALCIUM W/VITAMIN D [Concomitant]
  7. VILDAGLIPTIN [Concomitant]
  8. THIAMINE HCL [Concomitant]
  9. PEG-INTRON [Concomitant]
     Indication: HEPATITIS C
     Route: 065
     Dates: start: 20111114
  10. MULTI-VITAMINS [Concomitant]

REACTIONS (2)
  - RESPIRATORY ALKALOSIS [None]
  - HEPATIC ENCEPHALOPATHY [None]
